FAERS Safety Report 25875622 (Version 2)
Quarter: 2025Q4

REPORT INFORMATION
  Report Type: Spontaneous
  Country: JP (occurrence: JP)
  Receive Date: 20251003
  Receipt Date: 20251125
  Transmission Date: 20260118
  Serious: Yes (Other)
  Sender: CSL BEHRING
  Company Number: JP-BEH-2025220245

PATIENT
  Age: 30 Year
  Sex: Male

DRUGS (1)
  1. PRIVIGEN [Suspect]
     Active Substance: HUMAN IMMUNOGLOBULIN G
     Indication: Product used for unknown indication
     Dosage: 20 G (20 G/200ML, 1V), TOT
     Route: 065
     Dates: start: 20250922, end: 20250922

REACTIONS (9)
  - Pyrexia [Unknown]
  - Chills [Unknown]
  - Feeling hot [Unknown]
  - Hot flush [Unknown]
  - Dyspnoea [Unknown]
  - Respiratory disorder [Unknown]
  - Palpitations [Unknown]
  - Tachycardia [Unknown]
  - Oxygen saturation decreased [Unknown]

NARRATIVE: CASE EVENT DATE: 20250922
